FAERS Safety Report 10236636 (Version 1)
Quarter: 2014Q2

REPORT INFORMATION
  Report Type: Spontaneous
  Country: DE (occurrence: DE)
  Receive Date: 20140613
  Receipt Date: 20140613
  Transmission Date: 20141212
  Serious: Yes (Other)
  Sender: FDA-Public Use
  Company Number: DE-WATSON-2014-12500

PATIENT
  Age: 77 Year
  Sex: Female

DRUGS (15)
  1. AMLODIPINE (UNKNOWN) [Suspect]
     Indication: PRODUCT USED FOR UNKNOWN INDICATION
     Dosage: 10 MG, DAILY
     Route: 048
  2. REMERGIL [Suspect]
     Indication: PRODUCT USED FOR UNKNOWN INDICATION
     Dosage: 15 MG, DAILY
     Route: 048
     Dates: start: 20131217, end: 20131218
  3. REMERGIL [Suspect]
     Dosage: 22.5 MG, DAILY
     Route: 048
     Dates: start: 20131219, end: 20131227
  4. REMERGIL [Suspect]
     Dosage: 15 MG, DAILY
     Route: 048
     Dates: start: 20131228, end: 20140101
  5. MADOPAR [Suspect]
     Indication: PRODUCT USED FOR UNKNOWN INDICATION
     Dosage: 4 DF, DAILY
     Route: 048
     Dates: start: 20131219
  6. MADOPAR [Suspect]
     Dosage: 3 DF, DAILY
     Route: 048
     Dates: start: 20131220, end: 20131224
  7. MADOPAR [Suspect]
     Dosage: 2 DF, DAILY
     Route: 048
     Dates: start: 20131223, end: 20140101
  8. PANTOZOL                           /01263204/ [Suspect]
     Indication: PRODUCT USED FOR UNKNOWN INDICATION
     Dosage: 40 MG, DAILY
     Route: 048
     Dates: end: 20140107
  9. PANTOZOL                           /01263204/ [Suspect]
     Dosage: 80 MG, DAILY
     Route: 048
     Dates: start: 20140108
  10. TILIDIN [Concomitant]
     Indication: PRODUCT USED FOR UNKNOWN INDICATION
     Dosage: 150/12 MG, UNK
     Route: 048
     Dates: start: 20131217
  11. TILIDIN [Concomitant]
     Dosage: 100/8 MG, UNK
     Route: 048
     Dates: start: 20131218, end: 20131225
  12. TILIDIN [Concomitant]
     Dosage: 50/4 MG, UNK
     Route: 048
     Dates: start: 20131226, end: 20140112
  13. TILIDIN [Concomitant]
     Dosage: 200/16 MG, UNK
     Route: 048
     Dates: start: 20140113
  14. NOVAMINSULFON [Concomitant]
     Indication: PRODUCT USED FOR UNKNOWN INDICATION
     Dosage: 1500 MG, UNK
     Route: 048
     Dates: end: 20140113
  15. L-THYROXIN [Concomitant]
     Indication: PRODUCT USED FOR UNKNOWN INDICATION
     Dosage: 75 ?G, DAILY
     Route: 048

REACTIONS (1)
  - Hepatic enzyme increased [Recovering/Resolving]
